FAERS Safety Report 8850553 (Version 2)
Quarter: 2012Q4

REPORT INFORMATION
  Report Type: 
  Country: CA (occurrence: CA)
  Receive Date: 20121019
  Receipt Date: 20121128
  Transmission Date: 20130627
  Serious: Yes (Death, Hospitalization)
  Sender: FDA-Public Use
  Company Number: CA-MERCK-1210CAN008422

PATIENT
  Sex: Female

DRUGS (1)
  1. TEMODAL [Suspect]
     Indication: ANAPLASTIC ASTROCYTOMA
     Dosage: 120 mg, qd
     Route: 048
     Dates: start: 201208, end: 201210

REACTIONS (5)
  - Death [Fatal]
  - Pneumonia [Unknown]
  - White blood cell count decreased [Unknown]
  - Pyrexia [Unknown]
  - Oxygen saturation abnormal [Unknown]
